FAERS Safety Report 9156399 (Version 1)
Quarter: 2013Q1

REPORT INFORMATION
  Report Type: Spontaneous
  Country: US (occurrence: US)
  Receive Date: 20130312
  Receipt Date: 20130312
  Transmission Date: 20140127
  Serious: No
  Sender: FDA-Public Use
  Company Number: US-BIOGENIDEC-2013BI021484

PATIENT
  Age: 79 Year
  Sex: Male

DRUGS (2)
  1. AVONEX [Suspect]
     Indication: MULTIPLE SCLEROSIS
     Route: 030
     Dates: start: 1994
  2. AVONEX [Suspect]
     Indication: MULTIPLE SCLEROSIS
     Route: 030
     Dates: start: 20030101

REACTIONS (7)
  - Hypoacusis [Not Recovered/Not Resolved]
  - Nasopharyngitis [Recovered/Resolved]
  - Gait disturbance [Unknown]
  - Mobility decreased [Recovered/Resolved with Sequelae]
  - Fatigue [Recovered/Resolved]
  - Asthenia [Recovered/Resolved]
  - Malaise [Recovered/Resolved]
